FAERS Safety Report 19634557 (Version 2)
Quarter: 2021Q3

REPORT INFORMATION
  Report Type: Spontaneous
  Country: US (occurrence: US)
  Receive Date: 20210730
  Receipt Date: 20210920
  Transmission Date: 20211014
  Serious: Yes (Other)
  Sender: FDA-Public Use
  Company Number: US-JNJFOC-20210755803

PATIENT
  Sex: Male

DRUGS (2)
  1. NEUTROGENA UNSPECIFIED (COSMETICS) [Suspect]
     Active Substance: COSMETICS
     Indication: PRODUCT USED FOR UNKNOWN INDICATION
     Dosage: SINCE THE LATE 1960S
     Route: 061
     Dates: start: 1960
  2. NEUTROGENA BEACH DEF WATER PLUS SUN PROTECT BR^D SPECT SPF 70 (AV\HOM\OCTI\OCTO) [Suspect]
     Active Substance: AVOBENZONE\HOMOSALATE\OCTISALATE\OCTOCRYLENE
     Indication: PROPHYLAXIS AGAINST SOLAR RADIATION
     Dosage: SINCE THE LATE 1960S?JUST ENOUGH FOR MY SKIN 2?3 TIMES A WEEK
     Route: 061
     Dates: start: 1960

REACTIONS (2)
  - Chronic lymphocytic leukaemia [Unknown]
  - Squamous cell carcinoma [Unknown]
